FAERS Safety Report 10064379 (Version 1)
Quarter: 2014Q2

REPORT INFORMATION
  Report Type: Spontaneous
  Country: US (occurrence: None)
  Receive Date: 20140407
  Receipt Date: 20140407
  Transmission Date: 20141212
  Serious: Yes (Other)
  Sender: FDA-Public Use
  Company Number: None

PATIENT
  Age: 21 Year
  Sex: Female
  Weight: 52.16 kg

DRUGS (1)
  1. MONISTAT 3 [Suspect]
     Indication: VULVOVAGINAL MYCOTIC INFECTION

REACTIONS (3)
  - Furuncle [None]
  - Dysuria [None]
  - Vulvovaginal pain [None]
